FAERS Safety Report 23572829 (Version 3)
Quarter: 2024Q2

REPORT INFORMATION
  Report Type: Report from Study
  Country: IN (occurrence: IN)
  Receive Date: 20240227
  Receipt Date: 20240627
  Transmission Date: 20240716
  Serious: Yes (Hospitalization, Other)
  Sender: FDA-Public Use
  Company Number: IN-002147023-NVSC2023IN279702

PATIENT

DRUGS (5)
  1. RUXOLITINIB [Suspect]
     Active Substance: RUXOLITINIB
     Indication: Primary myelofibrosis
     Dosage: 10 MG, BID
     Route: 048
     Dates: start: 20230427
  2. RUXOLITINIB [Suspect]
     Active Substance: RUXOLITINIB
     Indication: Thrombocytosis
     Dosage: 5 MG, BID
     Route: 065
     Dates: start: 2023
  3. RUXOLITINIB [Suspect]
     Active Substance: RUXOLITINIB
     Indication: Janus kinase 2 mutation
     Dosage: 10 MG, BID
     Route: 065
     Dates: start: 202404
  4. RUXOLITINIB [Suspect]
     Active Substance: RUXOLITINIB
     Indication: Myeloproliferative neoplasm
     Dosage: 5 MG, QD
     Route: 065
  5. RUXOLITINIB [Suspect]
     Active Substance: RUXOLITINIB
     Dosage: 10 MG, BID
     Route: 048

REACTIONS (10)
  - Basophil count abnormal [Unknown]
  - Full blood count abnormal [Unknown]
  - Haemoglobin abnormal [Unknown]
  - Blood lactate dehydrogenase abnormal [Unknown]
  - Haemoglobin decreased [Unknown]
  - Differential white blood cell count abnormal [Unknown]
  - Off label use [Unknown]
  - Wrong technique in product usage process [Unknown]
  - Infection [Unknown]
  - White blood cell count abnormal [Unknown]

NARRATIVE: CASE EVENT DATE: 20230101
